FAERS Safety Report 8179291-X (Version None)
Quarter: 2012Q1

REPORT INFORMATION
  Report Type: 
  Country: None (occurrence: None)
  Receive Date: 20120229
  Receipt Date: 20120229
  Transmission Date: 20120608
  Serious: Yes (Life-Threatening, Hospitalization)
  Sender: FDA-Public Use
  Company Number: None

PATIENT
  Age: 58 Year
  Sex: Male
  Weight: 61.2356 kg

DRUGS (2)
  1. LUPRON DEPOT [Suspect]
     Indication: PROSTATE CANCER
     Dosage: ONCE A MONTH NOV 2011 ONCE A MONTH DEC - 2011
     Dates: start: 20111201
  2. LUPRON DEPOT [Suspect]
     Indication: PROSTATE CANCER
     Dosage: ONCE A MONTH NOV 2011 ONCE A MONTH DEC - 2011
     Dates: start: 20111101

REACTIONS (5)
  - DIPLOPIA [None]
  - CEREBROVASCULAR ACCIDENT [None]
  - BLOOD CHOLESTEROL INCREASED [None]
  - INTRACRANIAL PRESSURE INCREASED [None]
  - BLOOD PRESSURE INCREASED [None]
